FAERS Safety Report 7347179-X (Version None)
Quarter: 2011Q1

REPORT INFORMATION
  Report Type: 
  Country: None (occurrence: None)
  Receive Date: 20110311
  Receipt Date: 20110310
  Transmission Date: 20110831
  Serious: Yes (Hospitalization)
  Sender: FDA-Public Use
  Company Number: IT-PFIZER INC-2011053798

PATIENT
  Age: 57 Year
  Sex: Male

DRUGS (2)
  1. COMBISARTAN [Concomitant]
     Indication: HYPERTENSION
     Dosage: 1 UNIT DOSE DAILY
     Route: 048
     Dates: start: 20100501, end: 20110309
  2. TORVAST [Suspect]
     Indication: HYPERCHOLESTEROLAEMIA
     Dosage: 20 MG, 1X/DAY
     Route: 048
     Dates: start: 20100801, end: 20110309

REACTIONS (4)
  - URTICARIA [None]
  - PRURITUS [None]
  - OEDEMA PERIPHERAL [None]
  - FACE OEDEMA [None]
